FAERS Safety Report 8097214-9 (Version None)
Quarter: 2012Q1

REPORT INFORMATION
  Report Type: 
  Country: None (occurrence: None)
  Receive Date: 20120126
  Receipt Date: 20120117
  Transmission Date: 20120608
  Serious: Yes (Other)
  Sender: FDA-Public Use
  Company Number: A0962117A

PATIENT
  Age: 48 Year
  Sex: Male

DRUGS (1)
  1. WHITE SOFT PARAFFIN (FORMULATION UNKNOWN) VANILLA (WHITE SOFT PARAFFIN [Suspect]
     Indication: PRODUCT USED FOR UNKNOWN INDICATION

REACTIONS (2)
  - DRUG DEPENDENCE [None]
  - NERVOUSNESS [None]
